FAERS Safety Report 5218371-5 (Version None)
Quarter: 2007Q1

REPORT INFORMATION
  Report Type: 
  Country: None (occurrence: None)
  Receive Date: 20070119
  Receipt Date: 20070110
  Transmission Date: 20070707
  Serious: Yes (Other)
  Sender: FDA-Public Use
  Company Number: 2006-03306

PATIENT
  Age: 71 Year
  Sex: Male

DRUGS (22)
  1. VELCADE [Suspect]
     Indication: MULTIPLE MYELOMA
     Dosage: 1.40 MG, INTRAVENOUS
     Route: 042
     Dates: start: 20061204, end: 20061214
  2. ZOMETA [Suspect]
     Indication: MULTIPLE MYELOMA
     Dosage: 5.00 ML
     Dates: start: 20061205, end: 20061205
  3. SODIUM BICARBONATE [Concomitant]
  4. NEUTROGIN [Concomitant]
  5. AMIKACIN SULFATE [Concomitant]
  6. LASIX [Concomitant]
  7. VORICONAZOLE (VORICONAZOLE) [Concomitant]
  8. RABEPRAZOLE SODIUM [Concomitant]
  9. ENALAPRIL MALEATE [Concomitant]
  10. LEVOFLOXACIN [Concomitant]
  11. ALLOPURINOL [Concomitant]
  12. SULFAMETHOXAZOLE + TRIMETHOPRIM [Concomitant]
  13. MAGNESIUM OXIDE (MAGNESIUM OXIDE) [Concomitant]
  14. HACHIAZULE (SODIUM BICARBONATE, SODIUM GUALENATE) [Concomitant]
  15. ADOFEED (FLURBIPROFEN) [Concomitant]
  16. XYLOCAINE [Concomitant]
  17. DEXAMETHASONE TAB [Concomitant]
  18. ISODINE (POVIDONE-IODINE) [Concomitant]
  19. FIRSTCIN (CEFOZOPRAN HYDROCHLORIDE) [Concomitant]
  20. GAMIMUNE [Concomitant]
  21. PLATELETS [Concomitant]
  22. RED BLOOD CELLS [Concomitant]

REACTIONS (18)
  - BASOPHIL COUNT DECREASED [None]
  - BLOOD ALKALINE PHOSPHATASE DECREASED [None]
  - BLOOD LACTATE DEHYDROGENASE INCREASED [None]
  - BLOOD UREA INCREASED [None]
  - BLOOD URIC ACID INCREASED [None]
  - COMPUTERISED TOMOGRAM THORAX ABNORMAL [None]
  - FEBRILE NEUTROPENIA [None]
  - FUNGUS SEROLOGY TEST POSITIVE [None]
  - HAEMOGLOBIN DECREASED [None]
  - HYPERKALAEMIA [None]
  - HYPOCALCAEMIA [None]
  - HYPONATRAEMIA [None]
  - LYMPHOCYTE COUNT DECREASED [None]
  - MOTOR DYSFUNCTION [None]
  - PLATELET COUNT DECREASED [None]
  - PLEURAL EFFUSION [None]
  - PROTEIN TOTAL INCREASED [None]
  - WHITE BLOOD CELL COUNT DECREASED [None]
